FAERS Safety Report 5689719-2 (Version None)
Quarter: 2008Q1

REPORT INFORMATION
  Report Type: 
  Country: None (occurrence: None)
  Receive Date: 20080328
  Receipt Date: 20080319
  Transmission Date: 20080703
  Serious: Yes (Other)
  Sender: FDA-Public Use
  Company Number: 232766J08USA

PATIENT
  Age: 48 Year
  Sex: Female

DRUGS (4)
  1. REBIF [Suspect]
     Indication: MULTIPLE SCLEROSIS
     Dates: start: 20060803
  2. DIURETICS (DIURETICS) [Concomitant]
  3. MOTRIN [Concomitant]
  4. EMLA CREAM (EMLA) [Concomitant]

REACTIONS (1)
  - UMBILICAL HERNIA [None]
